FAERS Safety Report 6041657-1 (Version None)
Quarter: 2009Q1

REPORT INFORMATION
  Report Type: 
  Country: None (occurrence: None)
  Receive Date: 20090116
  Receipt Date: 20081030
  Transmission Date: 20090719
  Serious: No
  Sender: FDA-Public Use
  Company Number: US-BRISTOL-MYERS SQUIBB COMPANY-14389704

PATIENT
  Age: 17 Year
  Sex: Female

DRUGS (3)
  1. ABILIFY [Suspect]
  2. LAMICTAL [Concomitant]
  3. STRATTERA [Concomitant]

REACTIONS (2)
  - TENSION [None]
  - TREMOR [None]
